FAERS Safety Report 8333741-4 (Version None)
Quarter: 2012Q2

REPORT INFORMATION
  Report Type: 
  Country: None (occurrence: None)
  Receive Date: 20120503
  Receipt Date: 20120503
  Transmission Date: 20120825
  Serious: Yes (Other)
  Sender: FDA-Public Use
  Company Number: None

PATIENT
  Sex: Female

DRUGS (8)
  1. CYMBALTA [Concomitant]
     Route: 048
  2. LISINOPRIL [Concomitant]
     Route: 048
  3. OMEPRAZOLE [Concomitant]
     Route: 048
  4. CLONAZEPAM [Concomitant]
     Route: 048
  5. LEVOFLOXACIN [Suspect]
     Indication: INFECTION PROPHYLAXIS
     Dosage: |DOSAGETEXT: 1 TABLET||STRENGTH: 500 MG||ROUTE: ORAL|
     Route: 048
     Dates: start: 20120306, end: 20120306
  6. IBUPROFEN (ADVIL) [Concomitant]
     Route: 048
  7. TIZANIDINE HCL [Concomitant]
     Route: 048
  8. PREMARIN [Concomitant]
     Route: 067

REACTIONS (5)
  - JOINT CREPITATION [None]
  - ARTHROPATHY [None]
  - MUSCULOSKELETAL STIFFNESS [None]
  - TENDONITIS [None]
  - GAIT DISTURBANCE [None]
